FAERS Safety Report 7717565 (Version 5)
Quarter: 2014Q1

REPORT INFORMATION
  Report Type: Report from Study
  Country: JP (occurrence: JP)
  Receive Date: 20101217
  Receipt Date: 20140312
  Transmission Date: 20141002
  Serious: Yes (Death, Life-Threatening)
  Sender: FDA-Public Use
  Company Number: JP-PFIZER INC-2010141915

PATIENT
  Age: 54 Year
  Sex: Female
  Weight: 53 kg

DRUGS (11)
  1. TEMSIROLIMUS [Suspect]
     Indication: RENAL CELL CARCINOMA
     Dosage: 15 MG, WEEKLY
     Route: 041
     Dates: start: 20101006, end: 20101020
  2. POLARAMINE [Concomitant]
     Dosage: 6 MG, WEEKLY
     Route: 048
     Dates: start: 20101006, end: 20101020
  3. NOVAMIN [Concomitant]
     Dosage: 5 MG, 3X/DAY
     Route: 048
     Dates: end: 20101104
  4. SELBEX [Concomitant]
     Dosage: 50 MG, 3X/DAY
     Route: 048
     Dates: end: 20101104
  5. TAKEPRON [Concomitant]
     Dosage: 15 MG, 1X/DAY
     Route: 048
     Dates: end: 20101104
  6. MAG-LAX [Concomitant]
     Dosage: 330 MG, 3X/DAY
     Route: 048
     Dates: end: 20101104
  7. FERRO-GRADUMET [Concomitant]
     Dosage: 105 MG, 1X/DAY
     Route: 048
     Dates: end: 20101104
  8. DECADRON [Concomitant]
     Dosage: 0.5 MG, 2X/DAY
     Route: 048
     Dates: end: 20101104
  9. VOLTAREN [Concomitant]
     Dosage: 25 MG, 3X/DAY
     Route: 048
     Dates: end: 20101104
  10. LASIX [Concomitant]
     Dosage: 40 MG, 1X/DAY
     Route: 048
     Dates: end: 20101104
  11. PURSENNID [Concomitant]
     Dosage: 36 MG, UNK
     Route: 048
     Dates: end: 20101104

REACTIONS (4)
  - Disease progression [Fatal]
  - Renal cell carcinoma [Fatal]
  - Pleural effusion [Not Recovered/Not Resolved]
  - Dyspnoea [Not Recovered/Not Resolved]
